FAERS Safety Report 10063507 (Version 2)
Quarter: 2014Q2

REPORT INFORMATION
  Report Type: Spontaneous
  Country: JP (occurrence: JP)
  Receive Date: 20140407
  Receipt Date: 20140407
  Transmission Date: 20141212
  Serious: Yes (Other)
  Sender: FDA-Public Use
  Company Number: JP-ELI_LILLY_AND_COMPANY-JP201402004077

PATIENT
  Sex: Male

DRUGS (1)
  1. HUMULIN REGULAR [Suspect]
     Indication: TYPE 2 DIABETES MELLITUS
     Dosage: UNK, SLIDING SCALE
     Route: 058

REACTIONS (3)
  - Renal impairment [Unknown]
  - Hepatic function abnormal [Unknown]
  - Eosinophilia [Unknown]
